FAERS Safety Report 20652910 (Version 2)
Quarter: 2022Q2

REPORT INFORMATION
  Report Type: Report from Study
  Country: FR (occurrence: None)
  Receive Date: 20220330
  Receipt Date: 20220413
  Transmission Date: 20220720
  Serious: Yes (Death)
  Sender: FDA-Public Use
  Company Number: 2022A128827

PATIENT
  Age: 660 Month
  Sex: Male
  Weight: 90 kg

DRUGS (4)
  1. EVUSHELD [Suspect]
     Active Substance: CILGAVIMAB\TIXAGEVIMAB
     Indication: Prophylaxis
     Dosage: UNKNOWN
     Route: 030
     Dates: start: 20220122, end: 20220122
  2. TACROLIMUS [Concomitant]
     Active Substance: TACROLIMUS
  3. CELLCEPT [Concomitant]
     Active Substance: MYCOPHENOLATE MOFETIL
  4. RITUXIMAB [Concomitant]
     Active Substance: RITUXIMAB

REACTIONS (3)
  - Cardiac arrest [Fatal]
  - Heart transplant rejection [Fatal]
  - Product use issue [Unknown]

NARRATIVE: CASE EVENT DATE: 20220122
